FAERS Safety Report 21396737 (Version 3)
Quarter: 2022Q4

REPORT INFORMATION
  Report Type: Report from Study
  Country: US (occurrence: US)
  Receive Date: 20220930
  Receipt Date: 20221216
  Transmission Date: 20230113
  Serious: Yes (Other)
  Sender: FDA-Public Use
  Company Number: US-PTx-2022000060

PATIENT
  Age: 43 Year
  Sex: Female

DRUGS (2)
  1. SARGRAMOSTIM [Suspect]
     Active Substance: SARGRAMOSTIM
     Indication: Neutropenia
     Dosage: 250 MCG/M2, SC
     Route: 058
     Dates: start: 20200926, end: 20200927
  2. EMPIRIC CEFEPIME [Concomitant]
     Indication: Evidence based treatment
     Dosage: 2 G= 50 ML IV
     Route: 042
     Dates: start: 20200926, end: 20201004

REACTIONS (1)
  - Febrile neutropenia [Recovered/Resolved]

NARRATIVE: CASE EVENT DATE: 20200926
